FAERS Safety Report 24132220 (Version 4)
Quarter: 2025Q4

REPORT INFORMATION
  Report Type: Spontaneous
  Country: EU (occurrence: EU)
  Receive Date: 20240724
  Receipt Date: 20251015
  Transmission Date: 20260117
  Serious: Yes (Life-Threatening, Hospitalization, Other)
  Sender: MACLEODS
  Company Number: EU-MACLEODS PHARMA-MAC2014001280

PATIENT

DRUGS (13)
  1. LEVOFLOXACIN [Suspect]
     Active Substance: LEVOFLOXACIN
     Indication: Pneumonia
     Dosage: 500 MG/DAY
     Route: 042
  2. LEVOFLOXACIN [Suspect]
     Active Substance: LEVOFLOXACIN
     Dosage: 500 MG, BID
     Route: 042
  3. METOPROLOL [Suspect]
     Active Substance: METOPROLOL
     Indication: Product used for unknown indication
     Dosage: 25 MG, BID/DAILY DOSE: 50 MG MILLIGRAM(S) EVERY DAY
     Route: 065
  4. LEVOFLOXACIN [Suspect]
     Active Substance: LEVOFLOXACIN
     Indication: Pneumonia
     Dosage: DAILY DOSE: 1000 MG MILLIGRAM(S) EVERY DAY
     Route: 042
  5. LEVOFLOXACIN [Suspect]
     Active Substance: LEVOFLOXACIN
     Dosage: 500 MG, QD/THERAPY STARTED WITH 500MG/DAY AND HAS BEEN CONTINUED IN A HIGHER DOSAGE
     Route: 042
  6. SIMVASTATIN [Suspect]
     Active Substance: SIMVASTATIN
     Indication: Hypercholesterolaemia
     Dosage: 40 MG/DAY
     Route: 065
  7. SIMVASTATIN [Suspect]
     Active Substance: SIMVASTATIN
     Dosage: 80 MG/DAY
     Route: 048
  8. SIMVASTATIN [Suspect]
     Active Substance: SIMVASTATIN
     Dosage: 40 MG/DAY
     Route: 048
  9. AMPICILLIN SODIUM\SULBACTAM SODIUM [Suspect]
     Active Substance: AMPICILLIN SODIUM\SULBACTAM SODIUM
     Indication: Pneumonia
     Route: 065
  10. ASPIRIN [Concomitant]
     Active Substance: ASPIRIN
     Indication: Product used for unknown indication
     Dosage: 100 MG/DAY
     Route: 065
  11. DIGITOXIN [Concomitant]
     Active Substance: DIGITOXIN
     Indication: Product used for unknown indication
     Dosage: 0.07 MG/DAY, EVERY DAY
     Route: 065
  12. FUROSEMIDE [Concomitant]
     Active Substance: FUROSEMIDE
     Indication: Product used for unknown indication
     Dosage: 40 MG/DAY, DAILY DOSE: 40 MG MILLIGRAM(S) EVERY DAY
     Route: 048
  13. FUROSEMIDE [Concomitant]
     Active Substance: FUROSEMIDE
     Route: 065

REACTIONS (24)
  - Rhabdomyolysis [Recovered/Resolved]
  - Hepatocellular injury [Recovered/Resolved]
  - Respiratory failure [Recovering/Resolving]
  - Asthenia [Recovered/Resolved]
  - Dysstasia [Recovering/Resolving]
  - Muscular weakness [Recovered/Resolved]
  - Hepatic enzyme increased [Recovered/Resolved]
  - Muscle enzyme increased [Recovered/Resolved]
  - General physical health deterioration [Recovered/Resolved]
  - Inflammatory marker increased [Recovering/Resolving]
  - Non-small cell lung cancer [Unknown]
  - Drug ineffective [Unknown]
  - Loss of personal independence in daily activities [Recovered/Resolved]
  - Diarrhoea [Unknown]
  - Disability [Recovered/Resolved]
  - Blood creatine phosphokinase increased [Recovered/Resolved]
  - C-reactive protein increased [Recovered/Resolved]
  - General physical health deterioration [Recovered/Resolved]
  - Asthenia [Recovered/Resolved]
  - Muscular weakness [Unknown]
  - Muscular weakness [Recovering/Resolving]
  - Aspartate aminotransferase increased [Recovered/Resolved]
  - Alanine aminotransferase increased [Recovered/Resolved]
  - Drug interaction [Recovered/Resolved]
